FAERS Safety Report 9499760 (Version 1)
Quarter: 2013Q1

REPORT INFORMATION
  Report Type: Spontaneous
  Country: US (occurrence: None)
  Receive Date: 20130107
  Receipt Date: 20130107
  Transmission Date: 20140127
  Serious: No
  Sender: FDA-Public Use
  Company Number: PHEH2012US020969

PATIENT
  Age: 47 Year
  Sex: Female

DRUGS (1)
  1. GILENYA (FINGOLIMOD) CAPSULE, 0.5MG [Suspect]
     Indication: MULTIPLE SCLEROSIS
     Route: 048
     Dates: start: 20120913, end: 20121102

REACTIONS (8)
  - Herpes zoster [None]
  - Tongue exfoliation [None]
  - Blood pressure fluctuation [None]
  - Visual acuity reduced [None]
  - Gait disturbance [None]
  - Nausea [None]
  - Heart rate decreased [None]
  - Oral mucosal blistering [None]
